FAERS Safety Report 24273356 (Version 1)
Quarter: 2024Q3

REPORT INFORMATION
  Report Type: Report from Study
  Country: US (occurrence: US)
  Receive Date: 20240902
  Receipt Date: 20240902
  Transmission Date: 20241017
  Serious: Yes (Hospitalization)
  Sender: ROCHE
  Company Number: US-ROCHE-10000063498

PATIENT
  Age: 59 Year
  Sex: Female
  Weight: 61.23 kg

DRUGS (43)
  1. CELLCEPT [Suspect]
     Active Substance: MYCOPHENOLATE MOFETIL
     Indication: Product used for unknown indication
     Route: 048
     Dates: start: 2020
  2. RITUXAN [Suspect]
     Active Substance: RITUXIMAB
     Indication: Behcet^s syndrome
     Route: 042
  3. RITUXAN [Suspect]
     Active Substance: RITUXIMAB
     Indication: Polychondritis
  4. DIAZEPAM [Suspect]
     Active Substance: DIAZEPAM
     Indication: Vestibular migraine
     Route: 048
     Dates: start: 2019
  5. ACTEMRA [Suspect]
     Active Substance: TOCILIZUMAB
     Indication: Product used for unknown indication
     Route: 042
  6. ALBUTEROL SULFATE [Concomitant]
     Active Substance: ALBUTEROL SULFATE
     Indication: Tracheomalacia
     Dosage: 90 MCG
     Route: 055
     Dates: start: 2016
  7. AMILORIDE [Concomitant]
     Active Substance: AMILORIDE
     Indication: Blood pressure measurement
     Route: 048
     Dates: start: 2016
  8. AMLODIPINE [Concomitant]
     Active Substance: AMLODIPINE BESYLATE
     Indication: Blood pressure measurement
     Route: 048
     Dates: start: 2016
  9. BACLOFEN [Concomitant]
     Active Substance: BACLOFEN
     Indication: Muscle spasms
     Dosage: 2 TIMES A DAY AS NEEDED
     Route: 048
     Dates: start: 2005
  10. BETAMETHASONE [Concomitant]
     Active Substance: BETAMETHASONE\BETAMETHASONE DIPROPIONATE
     Indication: Behcet^s syndrome
     Route: 061
     Dates: start: 2022
  11. PULMICORT TURBUHALER [Concomitant]
     Active Substance: BUDESONIDE
     Indication: Tracheomalacia
     Dosage: 180 MCG
     Route: 055
     Dates: start: 2016
  12. CARVEDILOL [Concomitant]
     Active Substance: CARVEDILOL
     Indication: Blood pressure measurement
     Route: 048
     Dates: start: 2016
  13. CELEBREX [Concomitant]
     Active Substance: CELECOXIB
     Indication: Arthritis
     Route: 048
     Dates: start: 2016
  14. VITAMIN D3 [Concomitant]
     Active Substance: CHOLECALCIFEROL
     Route: 048
  15. CYMBALTA [Concomitant]
     Active Substance: DULOXETINE HYDROCHLORIDE
     Indication: Pain
     Route: 048
  16. EZETIMIBE [Concomitant]
     Active Substance: EZETIMIBE
     Indication: Blood cholesterol
     Route: 048
  17. FLUCONAZOLE [Concomitant]
     Active Substance: FLUCONAZOLE
     Route: 048
  18. FUROSEMIDE [Concomitant]
     Active Substance: FUROSEMIDE
     Indication: Fluid retention
     Route: 048
  19. BENZHYDROCODONE AND ACETAMINOPHEN [Concomitant]
     Active Substance: ACETAMINOPHEN\BENZHYDROCODONE HYDROCHLORIDE
     Indication: Pain
     Dosage: 5/325 MG
     Route: 048
     Dates: start: 2024
  20. SYNTHROID [Concomitant]
     Active Substance: LEVOTHYROXINE SODIUM
     Indication: Autoimmune thyroiditis
     Dosage: 137 MCG
     Route: 048
     Dates: start: 2010
  21. LAMICTAL [Concomitant]
     Active Substance: LAMOTRIGINE
     Indication: Neuralgia
     Route: 048
  22. PREDNISONE [Concomitant]
     Active Substance: PREDNISONE
     Indication: Behcet^s syndrome
     Route: 048
  23. OMEPRAZOLE [Concomitant]
     Active Substance: OMEPRAZOLE
     Indication: Gastrooesophageal reflux disease
     Route: 048
  24. TRILEPTAL [Concomitant]
     Active Substance: OXCARBAZEPINE
     Indication: Trigeminal neuralgia
     Route: 048
     Dates: start: 2005
  25. OXYCONTIN [Concomitant]
     Active Substance: OXYCODONE HYDROCHLORIDE
     Indication: Pain
     Route: 048
     Dates: start: 2005
  26. ASPIRIN [Concomitant]
     Active Substance: ASPIRIN
  27. BUDESONIDE [Concomitant]
     Active Substance: BUDESONIDE
  28. CLOBETASOL PROPIONATE [Concomitant]
     Active Substance: CLOBETASOL PROPIONATE
  29. DIPHENHYDRAMINE HYDROCHLORIDE [Concomitant]
     Active Substance: DIPHENHYDRAMINE HYDROCHLORIDE
  30. DULOXETINE HYDROCHLORIDE [Concomitant]
     Active Substance: DULOXETINE HYDROCHLORIDE
     Route: 048
  31. ESTRADIOL [Concomitant]
     Active Substance: ESTRADIOL
  32. IBUPROFEN [Concomitant]
     Active Substance: IBUPROFEN
  33. IPRATROPIUM BROMIDE [Concomitant]
     Active Substance: IPRATROPIUM BROMIDE\IPRATROPIUM BROMIDE ANHYDROUS
  34. LEVOTHYROXINE SODIUM [Concomitant]
     Active Substance: LEVOTHYROXINE SODIUM
  35. LIDOCAINE [Concomitant]
     Active Substance: LIDOCAINE
  36. METFORMIN HYDROCHLORIDE [Concomitant]
     Active Substance: METFORMIN HYDROCHLORIDE
  37. NALOXONE HCL [Concomitant]
     Active Substance: NALOXONE HYDROCHLORIDE
  38. NYSTATIN [Concomitant]
     Active Substance: NYSTATIN
  39. OMEPRAZOLE [Concomitant]
     Active Substance: OMEPRAZOLE
  40. ONDANSETRON [Concomitant]
     Active Substance: ONDANSETRON
  41. OXCARBAZEPINE [Concomitant]
     Active Substance: OXCARBAZEPINE
  42. OXYCODONE HYDROCHLORIDE [Concomitant]
     Active Substance: OXYCODONE HYDROCHLORIDE
  43. PHENAZOPYRIDINE HCL [Concomitant]
     Active Substance: PHENAZOPYRIDINE HYDROCHLORIDE

REACTIONS (6)
  - Pneumonia [Recovered/Resolved]
  - Rib fracture [Not Recovered/Not Resolved]
  - Fall [Unknown]
  - Pain [Recovering/Resolving]
  - Glucose tolerance impaired [Not Recovered/Not Resolved]
  - Off label use [Unknown]

NARRATIVE: CASE EVENT DATE: 20230101
